FAERS Safety Report 6754203-1 (Version None)
Quarter: 2010Q2

REPORT INFORMATION
  Report Type: 
  Country: None (occurrence: None)
  Receive Date: 20100603
  Receipt Date: 20100521
  Transmission Date: 20101027
  Serious: Yes (Other)
  Sender: FDA-Public Use
  Company Number: US-ELI_LILLY_AND_COMPANY-US201004006966

PATIENT
  Sex: Female
  Weight: 62.358 kg

DRUGS (4)
  1. CYMBALTA [Suspect]
     Indication: DEPRESSION
     Dosage: 60 MG, DAILY (1/D)
     Route: 048
     Dates: start: 20080101
  2. AMLODIPINE [Concomitant]
  3. BENAZEPRIL HYDROCHLORIDE [Concomitant]
     Dosage: 30 MG, UNK
  4. ABILIFY [Suspect]
     Dosage: 30 MG, UNK

REACTIONS (1)
  - BREAST CANCER [None]
